FAERS Safety Report 9346458 (Version 1)
Quarter: 2013Q2

REPORT INFORMATION
  Report Type: Report from Study
  Country: US (occurrence: US)
  Receive Date: 20130613
  Receipt Date: 20130613
  Transmission Date: 20140414
  Serious: Yes (Hospitalization, Other)
  Sender: FDA-Public Use
  Company Number: US-ABBOTT-13P-163-1101735-00

PATIENT
  Age: 32 Year
  Sex: Female
  Weight: 82.63 kg

DRUGS (5)
  1. HUMIRA [Suspect]
     Indication: CROHN^S DISEASE
     Route: 058
     Dates: start: 200706, end: 200906
  2. PAIN MEDICATION [Concomitant]
     Indication: BACK PAIN
  3. TYLENOL [Concomitant]
     Indication: BACK PAIN
  4. FLEXERIL [Concomitant]
     Indication: MUSCLE SPASMS
  5. MULTIVITAMIN [Concomitant]
     Indication: VITAMIN SUPPLEMENTATION

REACTIONS (8)
  - Fatigue [Not Recovered/Not Resolved]
  - Abdominal pain [Not Recovered/Not Resolved]
  - Wound infection [Recovered/Resolved]
  - Hypertension [Not Recovered/Not Resolved]
  - Crohn^s disease [Recovered/Resolved]
  - Abdominal pain [Recovered/Resolved]
  - Dehydration [Recovered/Resolved]
  - Crohn^s disease [Unknown]
